FAERS Safety Report 24571808 (Version 7)
Quarter: 2025Q1

REPORT INFORMATION
  Report Type: Spontaneous
  Country: US (occurrence: US)
  Receive Date: 20241101
  Receipt Date: 20250228
  Transmission Date: 20250409
  Serious: Yes (Other)
  Sender: PFIZER
  Company Number: US-PFIZER INC-202400288850

PATIENT
  Age: 68 Year
  Sex: Female
  Weight: 59.42 kg

DRUGS (3)
  1. PREMARIN [Suspect]
     Active Substance: ESTROGENS, CONJUGATED
     Indication: Vulvovaginal dryness
     Dosage: 0.5 G, 2X/WEEK
     Route: 067
     Dates: start: 202302
  2. PREMARIN [Suspect]
     Active Substance: ESTROGENS, CONJUGATED
     Indication: Urticaria
  3. PREMARIN [Suspect]
     Active Substance: ESTROGENS, CONJUGATED
     Indication: Menopausal symptoms

REACTIONS (5)
  - Patient-device incompatibility [Unknown]
  - Device physical property issue [Unknown]
  - Device breakage [Unknown]
  - Limb injury [Unknown]
  - Blood urine present [Unknown]

NARRATIVE: CASE EVENT DATE: 20230201
